FAERS Safety Report 15713634 (Version 2)
Quarter: 2018Q4

REPORT INFORMATION
  Report Type: Spontaneous
  Country: US (occurrence: US)
  Receive Date: 20181212
  Receipt Date: 20181219
  Transmission Date: 20190205
  Serious: No
  Sender: FDA-Public Use
  Company Number: US-PFIZER INC-2018506188

PATIENT
  Age: 80 Year
  Sex: Female
  Weight: 68.49 kg

DRUGS (1)
  1. IBRANCE [Suspect]
     Active Substance: PALBOCICLIB
     Indication: BONE CANCER
     Dosage: 100 MG, DAILY (WITH FOOD)
     Route: 048

REACTIONS (3)
  - White blood cell count decreased [Unknown]
  - Product use in unapproved indication [Unknown]
  - Neoplasm progression [Unknown]

NARRATIVE: CASE EVENT DATE: 2018
